FAERS Safety Report 9333261 (Version 1)
Quarter: 2013Q2

REPORT INFORMATION
  Report Type: Spontaneous
  Country: CA (occurrence: CA)
  Receive Date: 20130606
  Receipt Date: 20130606
  Transmission Date: 20140414
  Serious: Yes (Hospitalization)
  Sender: FDA-Public Use
  Company Number: CA-OPTIMER PHARMACEUTICALS, INC.-20120162

PATIENT
  Sex: 0

DRUGS (1)
  1. DIFICID [Suspect]
     Indication: PRODUCT USED FOR UNKNOWN INDICATION
     Dosage: UNK, BID
     Route: 048
     Dates: start: 20121019, end: 20121028

REACTIONS (2)
  - Clostridium difficile infection [Unknown]
  - Disease recurrence [Unknown]
